FAERS Safety Report 7701601-5 (Version None)
Quarter: 2011Q3

REPORT INFORMATION
  Report Type: 
  Country: None (occurrence: None)
  Receive Date: 20110822
  Receipt Date: 20110223
  Transmission Date: 20111222
  Serious: No
  Sender: FDA-Public Use
  Company Number: US-BRISTOL-MYERS SQUIBB COMPANY-15565286

PATIENT
  Age: 7 Year
  Sex: Female

DRUGS (1)
  1. CEENU [Suspect]
     Indication: BRAIN NEOPLASM

REACTIONS (2)
  - VOMITING [None]
  - DYSPHAGIA [None]
